FAERS Safety Report 13027258 (Version 1)
Quarter: 2016Q4

REPORT INFORMATION
  Report Type: Spontaneous
  Country: US (occurrence: US)
  Receive Date: 20161214
  Receipt Date: 20161214
  Transmission Date: 20170207
  Serious: No
  Sender: FDA-Public Use
  Company Number: US-PFIZER INC-2016566602

PATIENT
  Age: 53 Year
  Sex: Female

DRUGS (1)
  1. IBRANCE [Suspect]
     Active Substance: PALBOCICLIB
     Indication: LEIOMYOMA
     Dosage: 125 MG, DAILY FOR 21 DAYS
     Route: 048
     Dates: start: 20161123

REACTIONS (3)
  - Fatigue [Unknown]
  - Defaecation urgency [Unknown]
  - Product use issue [Unknown]

NARRATIVE: CASE EVENT DATE: 20161123
